FAERS Safety Report 4916335-X (Version None)
Quarter: 2006Q1

REPORT INFORMATION
  Report Type: 
  Country: None (occurrence: None)
  Receive Date: 20060217
  Receipt Date: 20050930
  Transmission Date: 20060701
  Serious: Yes (Death, Hospitalization, Other)
  Sender: FDA-Public Use
  Company Number: US-MERCK-0510USA00744

PATIENT
  Age: 72 Year
  Sex: Female
  Weight: 56 kg

DRUGS (6)
  1. VIOXX [Suspect]
     Indication: PAIN IN EXTREMITY
     Route: 048
     Dates: start: 20030308, end: 20030310
  2. LEVAQUIN [Concomitant]
     Route: 065
  3. ROCEPHIN [Concomitant]
     Route: 065
  4. SEPTRA [Concomitant]
     Route: 065
  5. SOLU-MEDROL [Concomitant]
     Route: 065
  6. PHENERGAN [Concomitant]
     Route: 065

REACTIONS (6)
  - BRADYCARDIA [None]
  - DEATH [None]
  - ISCHAEMIC STROKE [None]
  - STEVENS-JOHNSON SYNDROME [None]
  - TOXIC EPIDERMAL NECROLYSIS [None]
  - URINARY TRACT INFECTION [None]
